FAERS Safety Report 22082973 (Version 2)
Quarter: 2023Q1

REPORT INFORMATION
  Report Type: Spontaneous
  Country: FI (occurrence: FI)
  Receive Date: 20230310
  Receipt Date: 20230323
  Transmission Date: 20230418
  Serious: Yes (Hospitalization, Other)
  Sender: FDA-Public Use
  Company Number: FI-MLMSERVICE-20230216-4103465-1

PATIENT

DRUGS (12)
  1. ROSUVASTATIN [Suspect]
     Active Substance: ROSUVASTATIN
     Indication: Product used for unknown indication
     Dosage: FROM DAY  -32 TO DAY 24
     Route: 065
  2. TICAGRELOR [Suspect]
     Active Substance: TICAGRELOR
     Indication: Product used for unknown indication
     Route: 065
  3. FUROSEMIDE [Concomitant]
     Active Substance: FUROSEMIDE
     Indication: Product used for unknown indication
     Route: 065
  4. TIOTROPIUM BROMIDE 18 ug [Concomitant]
     Indication: Product used for unknown indication
     Dosage: INHALATION USE
  5. SALBUTAMOL 200 ug [Concomitant]
     Indication: Product used for unknown indication
     Dosage: (INHALATION USE)
  6. SALBUTAMOL 200 ug [Concomitant]
  7. SPIRONOLACTONE 12.5mg [Concomitant]
     Indication: Product used for unknown indication
     Route: 065
  8. MAGNESIUM 250mg [Concomitant]
     Indication: Product used for unknown indication
     Route: 065
  9. RAMIPRIL [Concomitant]
     Active Substance: RAMIPRIL
     Indication: Product used for unknown indication
     Route: 065
  10. ASPIRIN [Concomitant]
     Active Substance: ASPIRIN
     Indication: Product used for unknown indication
     Route: 065
  11. BECLOMETASONE 200 ug [Concomitant]
     Indication: Product used for unknown indication
     Dosage: (INHALATION USE)
  12. BISOPROLOL [Concomitant]
     Active Substance: BISOPROLOL
     Indication: Product used for unknown indication
     Route: 065

REACTIONS (3)
  - Drug interaction [Recovered/Resolved]
  - Rhabdomyolysis [Recovered/Resolved]
  - Blood creatinine increased [Recovering/Resolving]
